FAERS Safety Report 6795565-9 (Version None)
Quarter: 2010Q2

REPORT INFORMATION
  Report Type: 
  Country: None (occurrence: None)
  Receive Date: 20100520
  Receipt Date: 20090831
  Transmission Date: 20101027
  Serious: Yes (Other)
  Sender: FDA-Public Use
  Company Number: 2009262604

PATIENT
  Age: 64 Year
  Sex: Female
  Weight: 99.7 kg

DRUGS (6)
  1. PROVERA [Suspect]
     Indication: HORMONE REPLACEMENT THERAPY
     Dosage: ORAL
     Route: 048
     Dates: start: 19950401, end: 20010301
  2. PREMARIN [Suspect]
     Indication: HORMONE REPLACEMENT THERAPY
     Dates: start: 19950401, end: 20010301
  3. ATENOLOL [Concomitant]
  4. PLENDIL [Concomitant]
  5. LIPITOR 9ATORVASTATIN0 [Concomitant]
  6. NAPROXEN [Concomitant]

REACTIONS (1)
  - BREAST CANCER FEMALE [None]
